FAERS Safety Report 11689997 (Version 2)
Quarter: 2015Q4

REPORT INFORMATION
  Report Type: Spontaneous
  Country: FR (occurrence: FR)
  Receive Date: 20151102
  Receipt Date: 20151109
  Transmission Date: 20160304
  Serious: Yes (Hospitalization)
  Sender: FDA-Public Use
  Company Number: FR-009507513-1510FRA014703

PATIENT
  Age: 57 Year
  Sex: Female

DRUGS (13)
  1. ADRIBLASTINE [Suspect]
     Active Substance: DOXORUBICIN
     Dosage: 1ST CYCLE OF ADRIBLASTINE ALONE (75 MG/M2 EVERY 21 DAYS)
     Dates: start: 20151001
  2. UROMITEXAN [Suspect]
     Active Substance: MESNA
     Dosage: 6 MG, QD
     Route: 042
     Dates: start: 20150902, end: 20150905
  3. LEVOTHYROX [Concomitant]
     Active Substance: LEVOTHYROXINE
     Dosage: 50 MICROGRAM/ 24 HOURS
     Route: 048
  4. ADRIBLASTINE [Suspect]
     Active Substance: DOXORUBICIN
     Dosage: 37 MG, QD
     Route: 042
     Dates: start: 20150902, end: 20150904
  5. ONDANSETRON ACCORD [Suspect]
     Active Substance: ONDANSETRON
     Dosage: 8 MG, QD
     Route: 042
     Dates: start: 20150902, end: 20150905
  6. LODOZ [Concomitant]
     Active Substance: BISOPROLOL FUMARATE\HYDROCHLOROTHIAZIDE
     Dosage: 5/ 6.25 MG/ 24 HOURS
     Route: 048
  7. PANTOPRAZOLE SODIUM. [Concomitant]
     Active Substance: PANTOPRAZOLE SODIUM
     Indication: GASTROOESOPHAGEAL REFLUX PROPHYLAXIS
     Dosage: 40 MG, QD
     Route: 042
     Dates: start: 20150902, end: 20150910
  8. EMEND [Suspect]
     Active Substance: APREPITANT
     Dosage: 80 MG, QD ON DAY 2
     Route: 048
     Dates: start: 20150903, end: 20150903
  9. IFOSFAMIDE. [Suspect]
     Active Substance: IFOSFAMIDE
     Dosage: 3720 MG, QD, ADAPTED TO RENAL CLEARANCE
     Route: 042
     Dates: start: 20150902, end: 20150904
  10. FUROSEMIDE. [Suspect]
     Active Substance: FUROSEMIDE
     Dosage: 20 MG EVERY 8 HOURS
     Route: 042
     Dates: start: 20150902, end: 20150904
  11. METHYLPREDNISOLONE. [Concomitant]
     Active Substance: METHYLPREDNISOLONE
     Dosage: 60 MG, QD
     Route: 042
     Dates: start: 20150902, end: 20150910
  12. EMEND [Suspect]
     Active Substance: APREPITANT
     Dosage: 125 MG, QD ON DAY 1
     Route: 048
     Dates: start: 20150902, end: 20150902
  13. EMEND [Suspect]
     Active Substance: APREPITANT
     Dosage: 80 MG, QD ON DAY 3
     Route: 048
     Dates: start: 20150904, end: 20150904

REACTIONS (3)
  - Confusional state [Recovered/Resolved]
  - Disorientation [Recovered/Resolved]
  - Encephalopathy [Recovered/Resolved]

NARRATIVE: CASE EVENT DATE: 20150905
